FAERS Safety Report 10045335 (Version 2)
Quarter: 2014Q2

REPORT INFORMATION
  Report Type: Report from Study
  Country: ES (occurrence: ES)
  Receive Date: 20140328
  Receipt Date: 20140502
  Transmission Date: 20141212
  Serious: No
  Sender: FDA-Public Use
  Company Number: ES-BAYER-2014-047681

PATIENT
  Sex: Male

DRUGS (2)
  1. ALPHARADIN [Suspect]
     Indication: PROSTATE CANCER STAGE IV
  2. ALPHARADIN [Suspect]
     Indication: METASTASES TO BONE

REACTIONS (4)
  - Leukopenia [Not Recovered/Not Resolved]
  - Lymphocyte count decreased [Not Recovered/Not Resolved]
  - Thrombocytopenia [Not Recovered/Not Resolved]
  - Anaemia [Not Recovered/Not Resolved]
